FAERS Safety Report 17653007 (Version 1)
Quarter: 2020Q2

REPORT INFORMATION
  Report Type: Spontaneous
  Country: US (occurrence: US)
  Receive Date: 20200409
  Receipt Date: 20200409
  Transmission Date: 20200713
  Serious: Yes (Death)
  Sender: FDA-Public Use
  Company Number: US-TEVA-2020-US-1219575

PATIENT
  Age: 23 Year
  Sex: Male

DRUGS (4)
  1. TRAMADOL. [Suspect]
     Active Substance: TRAMADOL
     Indication: BACK INJURY
     Route: 065
  2. HYDROCODONE [Suspect]
     Active Substance: HYDROCODONE
     Indication: BACK INJURY
     Route: 065
  3. HYDROCODONE [Suspect]
     Active Substance: HYDROCODONE
     Indication: PAIN
  4. METOPROLOL. [Suspect]
     Active Substance: METOPROLOL
     Indication: BACK INJURY
     Route: 065

REACTIONS (5)
  - Emotional disorder [Unknown]
  - Product prescribing error [Unknown]
  - Delusion [Unknown]
  - Thinking abnormal [Unknown]
  - Overdose [Fatal]

NARRATIVE: CASE EVENT DATE: 20180423
